FAERS Safety Report 10080834 (Version 2)
Quarter: 2014Q4

REPORT INFORMATION
  Report Type: Spontaneous
  Country: US (occurrence: US)
  Receive Date: 20140416
  Receipt Date: 20141226
  Transmission Date: 20150528
  Serious: Yes (Hospitalization, Other)
  Sender: FDA-Public Use
  Company Number: US-BAYER-2014-055556

PATIENT
  Age: 22 Year
  Sex: Female
  Weight: 68.27 kg

DRUGS (3)
  1. SYNTHROID [Concomitant]
     Active Substance: LEVOTHYROXINE SODIUM
     Dosage: 25 ?G, QD
     Route: 048
  2. YAZ [Suspect]
     Active Substance: DROSPIRENONE\ETHINYL ESTRADIOL
     Dosage: UNK
     Dates: start: 2007, end: 2013
  3. MORPHINE [Concomitant]
     Active Substance: MORPHINE
     Indication: PAIN

REACTIONS (10)
  - Cerebrovascular accident [None]
  - Injury [Recovered/Resolved]
  - Psychological trauma [None]
  - Dyspnoea [Recovered/Resolved]
  - Deep vein thrombosis [Recovered/Resolved]
  - Thrombosis [None]
  - Emotional distress [None]
  - Pulmonary embolism [Recovered/Resolved]
  - Pain [None]
  - Chest pain [Recovered/Resolved]

NARRATIVE: CASE EVENT DATE: 201308
